FAERS Safety Report 7689116-4 (Version None)
Quarter: 2011Q3

REPORT INFORMATION
  Report Type: 
  Country: None (occurrence: None)
  Receive Date: 20110817
  Receipt Date: 20110809
  Transmission Date: 20111222
  Serious: Yes (Hospitalization)
  Sender: FDA-Public Use
  Company Number: US-ACTELION-A-US2011-48285

PATIENT

DRUGS (2)
  1. TRACLEER [Suspect]
     Indication: PULMONARY ARTERIAL HYPERTENSION
     Dosage: UNK
     Route: 048
     Dates: start: 20090807
  2. REVATIO [Concomitant]

REACTIONS (9)
  - INFECTION [None]
  - SKIN INFECTION [None]
  - CHEST PAIN [None]
  - MEDICAL DEVICE REMOVAL [None]
  - COMPLICATION OF DEVICE REMOVAL [None]
  - OEDEMA [None]
  - COMA [None]
  - SEPSIS [None]
  - FLUID RETENTION [None]
